FAERS Safety Report 4642265-7 (Version None)
Quarter: 2005Q2

REPORT INFORMATION
  Report Type: 
  Country: None (occurrence: None)
  Receive Date: 20050420
  Receipt Date: 20050407
  Transmission Date: 20051028
  Serious: Yes (Hospitalization)
  Sender: FDA-Public Use
  Company Number: 2005057206

PATIENT
  Age: 82 Year
  Sex: Male
  Weight: 62 kg

DRUGS (9)
  1. CABERGOLINE [Suspect]
     Indication: PARKINSON'S DISEASE
     Dosage: 0.25 MG (0.25 MG, DAILY), ORAL
     Route: 048
     Dates: start: 20030301, end: 20030313
  2. SINEMET [Concomitant]
  3. CHLORMADINONE ACETATE TAB [Concomitant]
  4. TAMSULOSIN HYDROCHLROIDE (TAMSULOSIN HYDROCHLROIDE) [Concomitant]
  5. STREPTOCOCCUS FAECALIS (STREPTOCOCCUS FAECALIS) [Concomitant]
  6. CLONAZEPAM [Concomitant]
  7. TRIMEBUTINE MALEATE (TRIMEBUTINE MALEATE) [Concomitant]
  8. MAGENSIUM OXIDE (MAGNESIUM OXIDE) [Concomitant]
  9. DOMPERIDONE (DOMPERIDONE) [Concomitant]

REACTIONS (4)
  - ABDOMINAL MASS [None]
  - CONSTIPATION [None]
  - FALL [None]
  - SPINAL COMPRESSION FRACTURE [None]
